FAERS Safety Report 10346758 (Version 2)
Quarter: 2014Q4

REPORT INFORMATION
  Report Type: Spontaneous
  Country: US (occurrence: US)
  Receive Date: 20140729
  Receipt Date: 20141022
  Transmission Date: 20150528
  Serious: No
  Sender: FDA-Public Use
  Company Number: US-BIOGENIDEC-2014BI071966

PATIENT
  Sex: Female

DRUGS (2)
  1. HUMALOG [Concomitant]
     Active Substance: INSULIN LISPRO
  2. TECFIDERA [Suspect]
     Active Substance: DIMETHYL FUMARATE
     Indication: PRODUCT USED FOR UNKNOWN INDICATION

REACTIONS (8)
  - Diabetic complication [Unknown]
  - Multiple sclerosis [Not Recovered/Not Resolved]
  - Chest discomfort [Recovered/Resolved]
  - Blood glucose decreased [Recovered/Resolved]
  - Incontinence [Unknown]
  - Blood pressure decreased [Unknown]
  - Blood glucose increased [Recovered/Resolved]
  - Hypersensitivity [Unknown]
